FAERS Safety Report 8791337 (Version 1)
Quarter: 2012Q4

REPORT INFORMATION
  Report Type: Spontaneous
  Country: US (occurrence: None)
  Receive Date: 20120911
  Receipt Date: 20120911
  Transmission Date: 20130627
  Serious: Yes (Hospitalization)
  Sender: FDA-Public Use
  Company Number: 2135225-2012-00103

PATIENT
  Sex: Female

DRUGS (4)
  1. AETOXISCLEROL [Suspect]
     Indication: THERAPEUTIC EMBOLISATION
     Route: 042
     Dates: start: 20120606
  2. AETOXISCLEROL [Suspect]
     Route: 042
     Dates: start: 20120606
  3. XYLOCAINE [Concomitant]
  4. VISIPAQUE [Concomitant]

REACTIONS (8)
  - Pelvic pain [None]
  - Malaise [None]
  - Dyspnoea [None]
  - Loss of consciousness [None]
  - Urinary incontinence [None]
  - Speech disorder [None]
  - Nervous system disorder [None]
  - Post procedural complication [None]
